FAERS Safety Report 7543069-8 (Version None)
Quarter: 2011Q2

REPORT INFORMATION
  Report Type: 
  Country: None (occurrence: None)
  Receive Date: 20110524
  Receipt Date: 20110224
  Transmission Date: 20111010
  Serious: No
  Sender: FDA-Public Use
  Company Number: 020231

PATIENT
  Sex: Male
  Weight: 77 kg

DRUGS (9)
  1. NAMENDA [Concomitant]
  2. CIMZIA [Suspect]
     Indication: CROHN'S DISEASE
     Dosage: (SUBCUTANEOUS), (2 SHOTS SUBCUTANEOUS)
     Route: 058
     Dates: start: 20091201
  3. CIMZIA [Suspect]
     Indication: CROHN'S DISEASE
     Dosage: (SUBCUTANEOUS), (2 SHOTS SUBCUTANEOUS)
     Route: 058
     Dates: start: 20100701
  4. MS CONTIN [Concomitant]
  5. HYDROMORPHONE HCL [Concomitant]
  6. FOLIC ACID [Concomitant]
  7. METHOTREXATE [Concomitant]
  8. CITALOPRAM HYDROBROMIDE [Concomitant]
  9. COLACE [Concomitant]

REACTIONS (6)
  - FATIGUE [None]
  - ABDOMINAL PAIN [None]
  - GASTROINTESTINAL INFECTION [None]
  - DEFAECATION URGENCY [None]
  - ANAL STENOSIS [None]
  - FREQUENT BOWEL MOVEMENTS [None]
